FAERS Safety Report 22885417 (Version 2)
Quarter: 2025Q1

REPORT INFORMATION
  Report Type: Report from Study
  Country: US (occurrence: US)
  Receive Date: 20230831
  Receipt Date: 20250321
  Transmission Date: 20250408
  Serious: Yes (Other)
  Sender: ABBVIE
  Company Number: US-ABBVIE-5387606

PATIENT
  Sex: Male

DRUGS (1)
  1. SKYRIZI [Suspect]
     Active Substance: RISANKIZUMAB-RZAA
     Indication: Psoriasis
     Route: 058
     Dates: start: 20220726

REACTIONS (4)
  - Cataract [Recovered/Resolved]
  - Glaucoma [Recovered/Resolved]
  - Eyelid ptosis [Unknown]
  - Visual field defect [Unknown]
